FAERS Safety Report 21119241 (Version 1)
Quarter: 2022Q3

REPORT INFORMATION
  Report Type: Spontaneous
  Country: FR (occurrence: FR)
  Receive Date: 20220722
  Receipt Date: 20220722
  Transmission Date: 20221026
  Serious: Yes (Hospitalization)
  Sender: FDA-Public Use
  Company Number: FR-SUN PHARMACEUTICAL INDUSTRIES LTD-2022RR-345817

PATIENT
  Age: 55 Year
  Sex: Male

DRUGS (3)
  1. GEMCITABINE [Suspect]
     Active Substance: GEMCITABINE
     Indication: T-cell lymphoma
     Dosage: 2 GRAM, WEEKLY
     Route: 065
     Dates: start: 20210728, end: 20210804
  2. DOXORUBICIN [Suspect]
     Active Substance: DOXORUBICIN
     Indication: T-cell lymphoma
     Dosage: 30 MILLIGRAM, WEEKLY
     Route: 065
     Dates: start: 20210728, end: 20210804
  3. VINORELBINE [Suspect]
     Active Substance: VINORELBINE TARTRATE
     Indication: T-cell lymphoma
     Dosage: 40 MILLIGRAM, WEEKLY
     Route: 065
     Dates: start: 20210728, end: 20210804

REACTIONS (1)
  - Capillary leak syndrome [Recovered/Resolved]

NARRATIVE: CASE EVENT DATE: 20210602
